FAERS Safety Report 17299037 (Version 1)
Quarter: 2020Q1

REPORT INFORMATION
  Report Type: Spontaneous
  Country: US (occurrence: US)
  Receive Date: 20200121
  Receipt Date: 20200121
  Transmission Date: 20200409
  Serious: No
  Sender: FDA-Public Use
  Company Number: None

PATIENT
  Age: 61 Year
  Sex: Female
  Weight: 74.25 kg

DRUGS (1)
  1. LYRICA [Suspect]
     Active Substance: PREGABALIN
     Indication: NEURALGIA
     Dosage: ?          QUANTITY:150 CAPSULE(S);?
     Route: 048

REACTIONS (3)
  - Somnolence [None]
  - Skin discolouration [None]
  - Dizziness [None]

NARRATIVE: CASE EVENT DATE: 20191030
